FAERS Safety Report 12856924 (Version 6)
Quarter: 2021Q3

REPORT INFORMATION
  Report Type: Spontaneous
  Country: US (occurrence: US)
  Receive Date: 20161018
  Receipt Date: 20210901
  Transmission Date: 20211014
  Serious: No
  Sender: FDA-Public Use
  Company Number: US-PFIZER INC-2016380232

PATIENT
  Age: 46 Year
  Sex: Female
  Weight: 52 kg

DRUGS (4)
  1. IBRANCE [Suspect]
     Active Substance: PALBOCICLIB
     Indication: BREAST CANCER FEMALE
     Dosage: 125 MG, CYCLIC (DAILY FOR 21 DAYS 7 DAYS OFF)
     Route: 048
  2. IBRANCE [Suspect]
     Active Substance: PALBOCICLIB
     Dosage: 125 MG, CYCLIC (DAILY FOR 21 DAYS 7 DAYS OFF)
     Route: 048
  3. FASLODEX [Concomitant]
     Active Substance: FULVESTRANT
     Indication: NEOPLASM MALIGNANT
     Dosage: UNK UNK, MONTHLY
  4. MEDICAL CANNABIS CBD [Suspect]
     Active Substance: CANNABIDIOL\HERBALS
     Dosage: VERY HIGH DOSE

REACTIONS (5)
  - Off label use [Unknown]
  - Gingival swelling [Recovering/Resolving]
  - Oral disorder [Recovered/Resolved with Sequelae]
  - Amnesia [Unknown]
  - Gingival pain [Recovering/Resolving]

NARRATIVE: CASE EVENT DATE: 2016
